FAERS Safety Report 6892903-3 (Version None)
Quarter: 2010Q3

REPORT INFORMATION
  Report Type: 
  Country: None (occurrence: None)
  Receive Date: 20100731
  Receipt Date: 20081104
  Transmission Date: 20110219
  Serious: No
  Sender: FDA-Public Use
  Company Number: US-PFIZER INC-2008076657

PATIENT
  Sex: Female

DRUGS (3)
  1. NORVASC [Suspect]
  2. DIOVAN HCT [Suspect]
     Dosage: 320/12.5
  3. TOPROL-XL [Suspect]

REACTIONS (1)
  - ALOPECIA [None]
